FAERS Safety Report 7927401-9 (Version None)
Quarter: 2011Q4

REPORT INFORMATION
  Report Type: 
  Country: None (occurrence: None)
  Receive Date: 20111118
  Receipt Date: 20111115
  Transmission Date: 20120403
  Serious: Yes (Death, Hospitalization)
  Sender: FDA-Public Use
  Company Number: PHHY2011US45344

PATIENT
  Sex: Male
  Weight: 177 kg

DRUGS (2)
  1. GLEEVEC [Suspect]
     Indication: CHRONIC MYELOID LEUKAEMIA
     Dosage: 400 MG, DAILY
     Route: 048
     Dates: start: 20080702
  2. GLEEVEC [Suspect]
     Dosage: 1 DF, QD
     Route: 048

REACTIONS (5)
  - CONSTIPATION [None]
  - DYSPEPSIA [None]
  - NEOPLASM MALIGNANT [None]
  - GASTROINTESTINAL MOTILITY DISORDER [None]
  - PROSTATE CANCER [None]
